FAERS Safety Report 4628296-1 (Version None)
Quarter: 2005Q2

REPORT INFORMATION
  Report Type: 
  Country: None (occurrence: None)
  Receive Date: 20050401
  Receipt Date: 20050318
  Transmission Date: 20051028
  Serious: Yes (Life-Threatening)
  Sender: FDA-Public Use
  Company Number: 0500012EN0020P

PATIENT
  Age: 2 Year
  Sex: Female
  Weight: 10 kg

DRUGS (5)
  1. ONCASPAR [Suspect]
     Indication: ACUTE LYMPHOCYTIC LEUKAEMIA
     Dosage: 1500 IU IM
     Route: 030
     Dates: start: 20020903, end: 20020903
  2. VINCRISTINE [Suspect]
     Indication: ACUTE LYMPHOCYTIC LEUKAEMIA
     Dosage: 1.5 MG/M2 IV QWEEK
     Dates: start: 20020831, end: 20020920
  3. DECADRON [Suspect]
     Indication: ACUTE LYMPHOCYTIC LEUKAEMIA
     Dosage: 30 MG PO QD FOR 28 DAYS
     Route: 048
     Dates: start: 20020831, end: 20020927
  4. CYTARABINE [Suspect]
     Indication: ACUTE LYMPHOCYTIC LEUKAEMIA
     Dosage: 50 MG/M2 IT
     Route: 038
     Dates: start: 20020831, end: 20020831
  5. METHOTREXATE [Suspect]
     Indication: ACUTE LYMPHOCYTIC LEUKAEMIA
     Dosage: 10 MG IT
     Route: 038
     Dates: start: 20020906, end: 20020906

REACTIONS (5)
  - ASTHENIA [None]
  - ILEUS [None]
  - RESPIRATORY DISORDER [None]
  - VOCAL CORD DISORDER [None]
  - VOCAL CORD PARALYSIS [None]
